FAERS Safety Report 4801771-2 (Version None)
Quarter: 2005Q4

REPORT INFORMATION
  Report Type: 
  Country: None (occurrence: None)
  Receive Date: 20051018
  Receipt Date: 20051014
  Transmission Date: 20060501
  Serious: Yes (Hospitalization)
  Sender: FDA-Public Use
  Company Number: US-JNJFOC-20050904776

PATIENT
  Sex: Female
  Weight: 74.84 kg

DRUGS (2)
  1. LEVAQUIN [Suspect]
     Indication: URINARY TRACT INFECTION
     Route: 048
  2. BENICAR [Concomitant]

REACTIONS (6)
  - BLOOD PRESSURE INCREASED [None]
  - CEREBRAL INFARCTION [None]
  - CEREBROVASCULAR ACCIDENT [None]
  - DRY MOUTH [None]
  - TONGUE OEDEMA [None]
  - VAGINAL INFECTION [None]
